FAERS Safety Report 9799570 (Version 1)
Quarter: 2014Q1

REPORT INFORMATION
  Report Type: Spontaneous
  Country: US (occurrence: US)
  Receive Date: 20140106
  Receipt Date: 20140106
  Transmission Date: 20141002
  Serious: No
  Sender: FDA-Public Use
  Company Number: US-GILEAD-2010-0031422

PATIENT
  Sex: Female

DRUGS (13)
  1. LETAIRIS [Suspect]
     Indication: PULMONARY ARTERIAL HYPERTENSION
     Route: 048
     Dates: start: 20100809
  2. REVATIO [Concomitant]
  3. METOPROLOL [Concomitant]
  4. BUMEX [Concomitant]
  5. SIMVASTATIN [Concomitant]
  6. ASPIRIN [Concomitant]
  7. BENICAR [Concomitant]
  8. AMLODIPINE [Concomitant]
  9. ALBUTEROL [Concomitant]
  10. SPIRIVA [Concomitant]
  11. ADVAIR [Concomitant]
  12. COLACE [Concomitant]
  13. ZANTAC [Concomitant]

REACTIONS (1)
  - Abdominal distension [Not Recovered/Not Resolved]
